FAERS Safety Report 15965976 (Version 2)
Quarter: 2019Q1

REPORT INFORMATION
  Report Type: Spontaneous
  Country: US (occurrence: US)
  Receive Date: 20190215
  Receipt Date: 20190221
  Transmission Date: 20190418
  Serious: No
  Sender: FDA-Public Use
  Company Number: US-PFIZER INC-2019059732

PATIENT
  Age: 73 Year
  Sex: Female
  Weight: 66 kg

DRUGS (2)
  1. LYRICA [Suspect]
     Active Substance: PREGABALIN
     Indication: NEURALGIA
  2. LYRICA [Suspect]
     Active Substance: PREGABALIN
     Indication: NECK PAIN
     Dosage: 150 MG, DAILY [150 MG PER DAY]

REACTIONS (2)
  - Body height decreased [Unknown]
  - Weight increased [Unknown]
